FAERS Safety Report 7375637-0 (Version None)
Quarter: 2011Q1

REPORT INFORMATION
  Report Type: 
  Country: None (occurrence: None)
  Receive Date: 20110325
  Receipt Date: 20110321
  Transmission Date: 20110831
  Serious: No
  Sender: FDA-Public Use
  Company Number: US-PFIZER INC-2011062009

PATIENT
  Sex: Female
  Weight: 58.05 kg

DRUGS (1)
  1. LYBREL [Suspect]
     Indication: MENORRHAGIA
     Dosage: 90/20
     Route: 048
     Dates: start: 20090201

REACTIONS (1)
  - FLATULENCE [None]
